FAERS Safety Report 8344077-X (Version None)
Quarter: 2012Q2

REPORT INFORMATION
  Report Type: 
  Country: None (occurrence: None)
  Receive Date: 20120508
  Receipt Date: 20110309
  Transmission Date: 20120825
  Serious: Yes (Hospitalization, Other)
  Sender: FDA-Public Use
  Company Number: US-TEVA-2011000718

PATIENT
  Sex: Male
  Weight: 68.1 kg

DRUGS (2)
  1. RITUXIMAB [Concomitant]
     Indication: NON-HODGKIN'S LYMPHOMA
     Dates: start: 20110101
  2. TREANDA [Suspect]
     Indication: NON-HODGKIN'S LYMPHOMA
     Route: 042
     Dates: start: 20110117

REACTIONS (10)
  - CONSTIPATION [None]
  - INFECTION [None]
  - VOMITING [None]
  - DYSGEUSIA [None]
  - NAUSEA [None]
  - PYREXIA [None]
  - DIARRHOEA [None]
  - CHILLS [None]
  - FATIGUE [None]
  - ASTHENIA [None]
